FAERS Safety Report 9683186 (Version 1)
Quarter: 2013Q4

REPORT INFORMATION
  Report Type: Spontaneous
  Country: US (occurrence: US)
  Receive Date: 20131112
  Receipt Date: 20131112
  Transmission Date: 20140711
  Serious: Yes (Hospitalization, Other)
  Sender: FDA-Public Use
  Company Number: US-ELI_LILLY_AND_COMPANY-US201311000096

PATIENT
  Sex: Female

DRUGS (3)
  1. CYMBALTA [Suspect]
     Indication: PAIN
     Dosage: 60 MG, UNKNOWN
     Route: 065
     Dates: start: 201306
  2. CYMBALTA [Suspect]
     Dosage: UNK, UNKNOWN
     Route: 065
  3. TRAZODONE [Concomitant]
     Indication: PRODUCT USED FOR UNKNOWN INDICATION
     Dosage: UNK, UNKNOWN
     Route: 065

REACTIONS (9)
  - Ligament rupture [Unknown]
  - Serotonin syndrome [Unknown]
  - Arthralgia [Unknown]
  - Tendonitis [Unknown]
  - Synovial cyst [Unknown]
  - Musculoskeletal stiffness [Unknown]
  - Muscle spasms [Unknown]
  - Hyperhidrosis [Unknown]
  - Tremor [Unknown]
